FAERS Safety Report 5675121-6 (Version None)
Quarter: 2008Q1

REPORT INFORMATION
  Report Type: 
  Country: None (occurrence: None)
  Receive Date: 20080320
  Receipt Date: 20080311
  Transmission Date: 20080703
  Serious: Yes (Life-Threatening, Hospitalization, Disabling)
  Sender: FDA-Public Use
  Company Number: GB-ROCHE-461672

PATIENT
  Age: 14 Year
  Sex: Male

DRUGS (1)
  1. ROACCUTANE [Suspect]
     Indication: ACNE
     Dosage: DRUG DOSAGE ALSO REPORTED AS 0.5MG/KG BODY WEIGHT
     Route: 048
     Dates: start: 20060627, end: 20060704

REACTIONS (3)
  - CARDIAC ARREST [None]
  - SYNCOPE [None]
  - VENTRICULAR FIBRILLATION [None]
